FAERS Safety Report 9155021 (Version 1)
Quarter: 2013Q1

REPORT INFORMATION
  Report Type: Spontaneous
  Country: US (occurrence: US)
  Receive Date: 20130311
  Receipt Date: 20130311
  Transmission Date: 20140127
  Serious: Yes (Hospitalization, Other)
  Sender: FDA-Public Use
  Company Number: US-BAYER-2013-028418

PATIENT
  Age: 34 Year
  Sex: Female
  Weight: 63.04 kg

DRUGS (42)
  1. YASMIN [Suspect]
     Indication: CONTRACEPTION
  2. MOTRIN [Concomitant]
     Dosage: UNK
     Dates: start: 20071129
  3. MOTRIN [Concomitant]
     Dosage: UNK
     Dates: start: 20080303
  4. BACTRIM DS [Concomitant]
     Dosage: ONE TABLET BID 3 DAYS
     Route: 048
     Dates: start: 20080205, end: 20080206
  5. ROCEPHIN [Concomitant]
     Dosage: 1 G, UNK
     Route: 030
     Dates: start: 20080206
  6. CIPROFLOXACIN [Concomitant]
     Dosage: 500 MG, BID
     Route: 048
     Dates: start: 20080206
  7. EFFEXOR [Concomitant]
     Dosage: 150 MG, DAILY
     Route: 048
     Dates: start: 20080206
  8. EFFEXOR [Concomitant]
     Dosage: UNK
     Dates: start: 20080505
  9. TRAZODONE [Concomitant]
     Dosage: 150 MG, HS
     Route: 048
     Dates: start: 20080206
  10. TRAZODONE [Concomitant]
     Dosage: UNK
     Dates: start: 20080505
  11. AZITHROMYCIN [Concomitant]
     Indication: CHLAMYDIAL INFECTION
     Dosage: 1 G, UNK
     Route: 048
     Dates: start: 20080215
  12. KEFLEX [Concomitant]
     Dosage: UNK
     Dates: start: 20080226
  13. FLEXERIL [Concomitant]
     Dosage: 10 MG, PRN FOR THE NEXT 14 DAYS
     Dates: start: 20080303
  14. TYLENOL [Concomitant]
     Dosage: 2 EVERY 6 HOURS
     Dates: start: 20080303
  15. TYLENOL [Concomitant]
     Dosage: UNK
     Dates: start: 20080601
  16. MORPHINE [Concomitant]
     Indication: PAIN
     Dosage: TITRATED 2 TO 10 MG
     Dates: start: 20080505
  17. MORPHINE [Concomitant]
     Indication: PAIN
     Dosage: UNK
     Dates: start: 20080507
  18. PHENERGAN [Concomitant]
     Indication: NAUSEA
     Dosage: 6.25-25 MG TITRATED
     Dates: start: 20080505
  19. PHENERGAN [Concomitant]
     Indication: NAUSEA
     Dosage: UNK
     Dates: start: 20080507
  20. K-DUR [Concomitant]
     Dosage: 10 MEQ, UNK
     Route: 048
     Dates: start: 20080505
  21. K-DUR [Concomitant]
     Dosage: 40 MEQ, UNK
     Route: 048
     Dates: start: 20080507
  22. PROMETHAZINE [Concomitant]
     Dosage: 6.25 MG, UNK
     Route: 042
     Dates: start: 20080505
  23. PROMETHAZINE [Concomitant]
     Dosage: UNK
     Dates: start: 20080507
  24. MIDAZOLAM [Concomitant]
     Dosage: 2
     Dates: start: 20080505
  25. FENTANYL [Concomitant]
     Dosage: 50 [PLUS] 50
     Dates: start: 20080505
  26. PROPOFOL [Concomitant]
     Dosage: 200 MG, UNK
     Dates: start: 20080505
  27. ROCURONIUM [Concomitant]
     Dosage: 5/15/10 MG
     Dates: start: 20080505
  28. SUCCINYLCHOLINE CHLORIDE [Concomitant]
     Dosage: 100 MG, UNK
     Dates: start: 20080505
  29. DEXAMETHASONE [Concomitant]
     Dosage: 5 MG, UNK
     Dates: start: 20080505
  30. ZOFRAN [Concomitant]
     Dosage: 4 MG, UNK
     Dates: start: 20080505
  31. ZOFRAN [Concomitant]
     Dosage: UNK
     Dates: start: 20080507
  32. TORADOL [Concomitant]
     Dosage: 30 MG, UNK
     Route: 030
     Dates: start: 20080505
  33. TORADOL [Concomitant]
     Dosage: UNK
     Dates: start: 20080507
  34. TORADOL [Concomitant]
     Dosage: UNK
     Dates: start: 20080601
  35. ANCEF [Concomitant]
     Dosage: 2 G, UNK
     Dates: start: 20080505
  36. NEOSTIGMINE [Concomitant]
     Dosage: 2 [PLUS] 1 MG
     Dates: start: 20080505
  37. GLYCOPYRROLATE [Concomitant]
     Dosage: 0.4 [PLUS] 0.2 MG
     Dates: start: 20080505
  38. PEPCID [Concomitant]
     Dosage: 20 MG, UNK
     Route: 042
     Dates: start: 20080505
  39. PEPCID [Concomitant]
     Dosage: 20 MG, UNK
     Route: 048
  40. SCOPOLAMINE [Concomitant]
     Dosage: 1.5 MG, UNK
     Route: 061
     Dates: start: 20080505
  41. VICODIN [Concomitant]
     Dosage: 1-2 TABS EVERY 4-6 HOURS AS NEEDED; 5/325
     Route: 048
     Dates: start: 20080505
  42. ADVIL [Concomitant]
     Dosage: 3 EVERY 6 HOURS
     Dates: start: 20080601

REACTIONS (2)
  - Pulmonary embolism [Recovered/Resolved]
  - Cholecystitis chronic [None]
